FAERS Safety Report 9412383 (Version 1)
Quarter: 2013Q3

REPORT INFORMATION
  Report Type: Spontaneous
  Country: US (occurrence: US)
  Receive Date: 20130722
  Receipt Date: 20130722
  Transmission Date: 20140515
  Serious: Yes (Other)
  Sender: FDA-Public Use
  Company Number: US-TARO PHARMACEUTICALS U.S.A., INC-2013SUN01057

PATIENT
  Age: 63 Year
  Sex: Male

DRUGS (2)
  1. CLOBETASOL PROPIONATE [Suspect]
     Indication: PRURITUS
     Dosage: 0.05 %, UNK
     Route: 061
  2. CICLOSPORIN [Suspect]
     Indication: PSORIASIS
     Dosage: UNK
     Route: 065

REACTIONS (3)
  - Infection parasitic [Recovered/Resolved]
  - Tinea capitis [Recovered/Resolved]
  - Adrenal insufficiency [Recovered/Resolved]
